FAERS Safety Report 8044456-4 (Version None)
Quarter: 2012Q1

REPORT INFORMATION
  Report Type: 
  Country: None (occurrence: None)
  Receive Date: 20120111
  Receipt Date: 20120111
  Transmission Date: 20120608
  Serious: Yes (Other)
  Sender: FDA-Public Use
  Company Number: None

PATIENT
  Age: 58 Year
  Sex: Female

DRUGS (1)
  1. RIBAVIRIN [Suspect]
     Indication: HEPATITIS C
     Dosage: 200 MG QAM PO  400MG QPM PO
     Route: 048
     Dates: start: 20110908, end: 20111201

REACTIONS (2)
  - NEUTROPHIL COUNT DECREASED [None]
  - ANAEMIA [None]
